FAERS Safety Report 4451435-2 (Version None)
Quarter: 2004Q3

REPORT INFORMATION
  Report Type: 
  Country: None (occurrence: None)
  Receive Date: 20040916
  Receipt Date: 20040906
  Transmission Date: 20050211
  Serious: Yes (Life-Threatening)
  Sender: FDA-Public Use
  Company Number: NO-ROCHE-379975

PATIENT
  Age: 51 Year
  Sex: Male

DRUGS (36)
  1. DACLIZUMAB [Suspect]
     Route: 042
  2. MYCOPHENOLATE MOFETIL [Suspect]
     Route: 042
     Dates: start: 20040610, end: 20040614
  3. MYCOPHENOLATE MOFETIL [Suspect]
     Route: 048
     Dates: start: 20040615
  4. TACROLIMUS [Suspect]
     Route: 048
     Dates: start: 20040624
  5. TACROLIMUS [Suspect]
     Route: 048
     Dates: start: 20040615, end: 20040616
  6. TACROLIMUS [Suspect]
     Route: 048
     Dates: start: 20040617, end: 20040617
  7. TACROLIMUS [Suspect]
     Route: 048
     Dates: start: 20040618, end: 20040618
  8. TACROLIMUS [Suspect]
     Route: 048
     Dates: start: 20040619, end: 20040619
  9. TACROLIMUS [Suspect]
     Route: 048
     Dates: start: 20040620, end: 20040620
  10. TACROLIMUS [Suspect]
     Route: 048
     Dates: start: 20040621, end: 20040621
  11. TACROLIMUS [Suspect]
     Route: 048
     Dates: start: 20040622, end: 20040623
  12. METHYLPREDNISOLONE [Suspect]
     Route: 065
     Dates: start: 20040610, end: 20040610
  13. METHYLPREDNISOLONE [Suspect]
     Route: 065
     Dates: start: 20040611, end: 20040612
  14. METHYLPREDNISOLONE [Suspect]
     Route: 065
     Dates: start: 20040613, end: 20040613
  15. PREDNISOLONE [Suspect]
     Route: 065
     Dates: start: 20040618
  16. PREDNISOLONE [Suspect]
     Route: 065
     Dates: start: 20040614, end: 20040614
  17. PREDNISOLONE [Suspect]
     Route: 065
     Dates: start: 20040615, end: 20040615
  18. PREDNISOLONE [Suspect]
     Route: 065
     Dates: start: 20040616, end: 20040616
  19. PREDNISOLONE [Suspect]
     Route: 065
     Dates: start: 20040617, end: 20040617
  20. BACTRIM [Concomitant]
     Route: 065
     Dates: start: 20040612
  21. MEROPENEM [Concomitant]
     Indication: INFECTION PROPHYLAXIS
     Dates: start: 20040610, end: 20040610
  22. FLUNITRAZEPAM [Concomitant]
     Route: 065
     Dates: start: 20040616, end: 20040628
  23. DALTEPARIN [Concomitant]
     Indication: THROMBOSIS PROPHYLAXIS
     Dates: start: 20040611, end: 20040623
  24. INSULIN [Concomitant]
     Indication: DIABETES MELLITUS
     Dates: start: 20030615
  25. PANTOPRAZOL [Concomitant]
     Dates: start: 20040611, end: 20040805
  26. PROMETAZIN [Concomitant]
     Dates: start: 20040614, end: 20040615
  27. PARACETAMOL [Concomitant]
     Indication: PAIN
     Dates: start: 20040614, end: 20040614
  28. AMPHOTERICIN B [Concomitant]
     Indication: ORAL FUNGAL INFECTION
     Dates: start: 20040620, end: 20040623
  29. FLUCONAZOLE [Concomitant]
     Indication: FUNGAL INFECTION
     Dates: start: 20040620, end: 20040623
  30. FUROSEMIDE [Concomitant]
     Dates: start: 20040622, end: 20040708
  31. ACETYLSALICYLIC ACID [Concomitant]
     Indication: THROMBOSIS PROPHYLAXIS
     Dates: start: 20040623
  32. MIRTAZAPIN [Concomitant]
     Indication: SEDATION
     Dates: start: 20040629
  33. CEFOTAXIM [Concomitant]
     Indication: INFECTION
     Dates: start: 20040703, end: 20040714
  34. METRONIDAZOLE [Concomitant]
     Indication: INFECTION
     Dates: start: 20040704, end: 20040706
  35. RANITIDINE [Concomitant]
     Dates: start: 20040805
  36. LEVOMEPROMAZIN [Concomitant]
     Dates: start: 20040614, end: 20040628

REACTIONS (1)
  - POST PROCEDURAL BILE LEAK [None]
